FAERS Safety Report 5258423-7 (Version None)
Quarter: 2007Q1

REPORT INFORMATION
  Report Type: 
  Country: None (occurrence: None)
  Receive Date: 20070306
  Receipt Date: 20070306
  Transmission Date: 20070707
  Serious: Yes (Hospitalization)
  Sender: FDA-Public Use
  Company Number: None

PATIENT
  Sex: Female
  Weight: 100 kg

DRUGS (9)
  1. SUTENT [Suspect]
     Indication: BREAST CANCER
     Dosage: 37.5 MG QD PO
     Route: 048
     Dates: start: 20061031, end: 20070220
  2. CELEBREX [Concomitant]
  3. VITAMIN B COMPLEX CAP [Concomitant]
  4. ASCORBIC ACID [Concomitant]
  5. ZINC [Concomitant]
  6. FLAX SEED OIL [Concomitant]
  7. SELENIUM SULFIDE [Concomitant]
  8. VICODIN [Concomitant]
  9. BACTROBAN NASAL OINT [Concomitant]

REACTIONS (3)
  - DEEP VEIN THROMBOSIS [None]
  - PULMONARY EMBOLISM [None]
  - SUPRAVENTRICULAR TACHYCARDIA [None]
